FAERS Safety Report 7304888-6 (Version None)
Quarter: 2011Q1

REPORT INFORMATION
  Report Type: 
  Country: None (occurrence: None)
  Receive Date: 20110222
  Receipt Date: 20110215
  Transmission Date: 20110831
  Serious: Yes (Death)
  Sender: FDA-Public Use
  Company Number: US-ELI_LILLY_AND_COMPANY-US201101004650

PATIENT
  Sex: Female
  Weight: 115.19 kg

DRUGS (1)
  1. BYETTA [Suspect]
     Indication: TYPE 2 DIABETES MELLITUS
     Dosage: 5 UG, DAILY (1/D)
     Route: 058
     Dates: start: 20100503, end: 20100513

REACTIONS (6)
  - BLOOD GLUCOSE INCREASED [None]
  - PANCREATIC CARCINOMA [None]
  - VISION BLURRED [None]
  - CONFUSIONAL STATE [None]
  - VERTIGO [None]
  - NAUSEA [None]
